FAERS Safety Report 25884205 (Version 1)
Quarter: 2025Q4

REPORT INFORMATION
  Report Type: Spontaneous
  Country: GB (occurrence: GB)
  Receive Date: 20251006
  Receipt Date: 20251006
  Transmission Date: 20260118
  Serious: Yes (Death, Life-Threatening, Other)
  Sender: MERCK SHARP & DOHME LLC
  Company Number: GB-MHRA-36832738

PATIENT
  Age: 53 Year
  Sex: Male

DRUGS (3)
  1. PEMBROLIZUMAB [Suspect]
     Active Substance: PEMBROLIZUMAB
     Dosage: SECOND CYCLE
     Dates: start: 20250820
  2. OXALIPLATIN [Suspect]
     Active Substance: OXALIPLATIN
     Dosage: SECOND CYCLE
     Dates: start: 20250820
  3. CAPECITABINE [Suspect]
     Active Substance: CAPECITABINE

REACTIONS (5)
  - Cardiac arrest [Fatal]
  - Swollen tongue [Unknown]
  - Erythema [Unknown]
  - Malaise [Unknown]
  - Joint stiffness [Unknown]
